FAERS Safety Report 9168079 (Version 2)
Quarter: 2013Q1

REPORT INFORMATION
  Report Type: Spontaneous
  Country: US (occurrence: None)
  Receive Date: 20130225
  Receipt Date: 20130312
  Transmission Date: 20140127
  Serious: Yes (Other)
  Sender: FDA-Public Use
  Company Number: 2013034745

PATIENT
  Sex: Male

DRUGS (2)
  1. PRIVIGEN (IMMUNE GLOBULIN INTRAVENOUS (HUMAN) 10% LIQUID) [Suspect]
     Indication: IMMUNE ENHANCEMENT THERAPY
     Dosage: EVERY 4-5 WEEKS WITH INFUSION TIME OVER 3-4 HOURS INTRAVENOUS
     Route: 042
     Dates: start: 20130105, end: 20130105
  2. TYLENOL (PARACETAMOL) [Concomitant]

REACTIONS (3)
  - Eosinophilic cellulitis [None]
  - Pruritus [None]
  - No therapeutic response [None]
